FAERS Safety Report 4576136-1 (Version None)
Quarter: 2005Q1

REPORT INFORMATION
  Report Type: 
  Country: None (occurrence: None)
  Receive Date: 20050204
  Receipt Date: 20050121
  Transmission Date: 20050727
  Serious: Yes (Hospitalization)
  Sender: FDA-Public Use
  Company Number: 8008656

PATIENT
  Age: 33 Year
  Sex: Female
  Weight: 78 kg

DRUGS (7)
  1. KEPPRA [Suspect]
     Indication: EPILEPSY
     Dosage: 500 MG/D PO
     Route: 048
     Dates: start: 20040720, end: 20040721
  2. KEPPRA [Suspect]
     Indication: EPILEPSY
     Dosage: 2000 MG /D PO
     Route: 048
     Dates: start: 20040722
  3. LAMOTRIGINE [Suspect]
     Indication: EPILEPSY
     Dosage: 150 MG / D PO
     Route: 048
     Dates: start: 20010101, end: 20040728
  4. ORFIRIL [Suspect]
     Indication: EPILEPSY
     Dosage: 3000 MG /D D  PO
     Route: 048
     Dates: start: 20010101, end: 20040719
  5. ORFIRIL [Suspect]
     Indication: EPILEPSY
     Dosage: 2500 MG/D PO
     Route: 048
     Dates: start: 20040720, end: 20040722
  6. ORFIRIL [Suspect]
     Indication: EPILEPSY
     Dosage: 2000 MG / D  PO
     Route: 048
     Dates: start: 20040723, end: 20040728
  7. ORFIRIL [Suspect]
     Indication: EPILEPSY
     Dosage: 1300 MG / D PO
     Route: 048
     Dates: start: 20040729

REACTIONS (3)
  - DRUG INTERACTION [None]
  - EXANTHEM [None]
  - SUICIDE ATTEMPT [None]
